FAERS Safety Report 8358264-8 (Version None)
Quarter: 2012Q2

REPORT INFORMATION
  Report Type: 
  Country: None (occurrence: None)
  Receive Date: 20120514
  Receipt Date: 20120507
  Transmission Date: 20120825
  Serious: Yes (Other)
  Sender: FDA-Public Use
  Company Number: US-BAYER-2012-045890

PATIENT
  Sex: Male

DRUGS (4)
  1. NAPROXEN (ALEVE) [Suspect]
     Dosage: 2 DF, QD
     Route: 048
     Dates: end: 20120301
  2. PRILOSEC [Concomitant]
     Dosage: 1 DF, QD
  3. PROBIOTICS [Concomitant]
     Dosage: 1 DF, QD
  4. PHILLIPS' LIQUID GELS STOOL SOFTENER [Suspect]
     Indication: CONSTIPATION
     Dosage: 2 DF, QD
     Route: 048
     Dates: start: 20120301, end: 20120301

REACTIONS (1)
  - RECTAL HAEMORRHAGE [None]
